FAERS Safety Report 20427458 (Version 1)
Quarter: 2022Q1

REPORT INFORMATION
  Report Type: Report from Study
  Country: US (occurrence: US)
  Receive Date: 20220204
  Receipt Date: 20220204
  Transmission Date: 20220423
  Serious: No
  Sender: FDA-Public Use
  Company Number: US-EXELIXIS-CABO-21044355

PATIENT
  Age: 57 Year
  Sex: Female

DRUGS (2)
  1. CABOMETYX [Suspect]
     Active Substance: CABOZANTINIB S-MALATE
     Indication: Ovarian cancer
     Dosage: 40 MG (4 DAYS A WEEK)
     Dates: start: 20210907
  2. CABOMETYX [Suspect]
     Active Substance: CABOZANTINIB S-MALATE
     Dosage: 40 MG, QD
     Dates: end: 20211014

REACTIONS (21)
  - Sinus pain [Not Recovered/Not Resolved]
  - Dysphagia [Not Recovered/Not Resolved]
  - Blood blister [Unknown]
  - Appetite disorder [Unknown]
  - Oropharyngeal pain [Not Recovered/Not Resolved]
  - Swollen tongue [Unknown]
  - Glossodynia [Not Recovered/Not Resolved]
  - Sinus headache [Not Recovered/Not Resolved]
  - Blood pressure fluctuation [Not Recovered/Not Resolved]
  - Asthenia [Recovering/Resolving]
  - Nausea [Not Recovered/Not Resolved]
  - Diarrhoea [Not Recovered/Not Resolved]
  - Constipation [Not Recovered/Not Resolved]
  - Dry skin [Recovering/Resolving]
  - Dry mouth [Not Recovered/Not Resolved]
  - Cough [Unknown]
  - Fatigue [Recovering/Resolving]
  - Stomatitis [Unknown]
  - Malignant neoplasm progression [Unknown]
  - Inappropriate schedule of product administration [Unknown]
  - Off label use [Unknown]

NARRATIVE: CASE EVENT DATE: 20210907
